FAERS Safety Report 10962856 (Version 1)
Quarter: 2015Q1

REPORT INFORMATION
  Report Type: Spontaneous
  Country: US (occurrence: US)
  Receive Date: 20150327
  Receipt Date: 20150327
  Transmission Date: 20150721
  Serious: No
  Sender: FDA-Public Use
  Company Number: US-009507513-1503USA011413

PATIENT
  Age: 15 Month
  Sex: Female

DRUGS (1)
  1. MIRALAX [Suspect]
     Active Substance: POLYETHYLENE GLYCOL 3350
     Indication: BOWEL MOVEMENT IRREGULARITY
     Dosage: 8.5 G, UNKNOWN
     Route: 048

REACTIONS (5)
  - Product use issue [Unknown]
  - Abdominal pain upper [Unknown]
  - Drug effect delayed [Unknown]
  - Drug prescribing error [Unknown]
  - Drug administered to patient of inappropriate age [Unknown]
